FAERS Safety Report 7473440-4 (Version None)
Quarter: 2011Q2

REPORT INFORMATION
  Report Type: 
  Country: None (occurrence: None)
  Receive Date: 20110503
  Receipt Date: 20110421
  Transmission Date: 20111010
  Serious: Yes (Hospitalization)
  Sender: FDA-Public Use
  Company Number: UTC-006122

PATIENT
  Age: 65 Year
  Sex: Female
  Weight: 57.2 kg

DRUGS (5)
  1. REVATIO [Concomitant]
  2. DIURETICS [Concomitant]
  3. REMODULIN [Suspect]
     Indication: CREST SYNDROME
     Dosage: 86.4 UG/KG (0.06 UG/KG, 1 IN 1 MIN, INTRAVENOUS
     Route: 042
     Dates: start: 20091201
  4. REMODULIN [Suspect]
     Indication: SCLERODERMA
     Dosage: 86.4 UG/KG (0.06 UG/KG, 1 IN 1 MIN, INTRAVENOUS
     Route: 042
     Dates: start: 20091201
  5. REMODULIN [Suspect]
     Indication: PULMONARY ARTERIAL HYPERTENSION
     Dosage: 86.4 UG/KG (0.06 UG/KG, 1 IN 1 MIN, INTRAVENOUS
     Route: 042
     Dates: start: 20091201

REACTIONS (1)
  - RECTAL HAEMORRHAGE [None]
